FAERS Safety Report 6931717-2 (Version None)
Quarter: 2010Q3

REPORT INFORMATION
  Report Type: 
  Country: None (occurrence: None)
  Receive Date: 20100813
  Receipt Date: 20100421
  Transmission Date: 20110219
  Serious: Yes (Hospitalization)
  Sender: FDA-Public Use
  Company Number: 1000013149

PATIENT
  Age: 56 Year
  Sex: Female
  Weight: 65.5901 kg

DRUGS (8)
  1. SAVELLA [Suspect]
     Indication: FIBROMYALGIA
     Dosage: 12.5 MG (12.5 MG, 1 IN 1 D), ORAL
     Route: 048
     Dates: start: 20100403, end: 20100403
  2. SAVELLA [Suspect]
     Indication: FIBROMYALGIA
     Dosage: 25 MG (12.5 MG, 2 IN 1 D), ORAL
     Route: 048
     Dates: start: 20100404, end: 20100405
  3. CALTRATE + VITAMIN D [Concomitant]
  4. LEVOTHYROXINE SODIUM [Concomitant]
  5. MULTI-VITAMIN [Concomitant]
  6. LORTAB [Concomitant]
  7. ELIDEL [Concomitant]
  8. TRIAMCINOLONE [Concomitant]

REACTIONS (4)
  - AFFECT LABILITY [None]
  - INSOMNIA [None]
  - PANIC ATTACK [None]
  - SUICIDAL IDEATION [None]
